FAERS Safety Report 6885707-9 (Version None)
Quarter: 2010Q3

REPORT INFORMATION
  Report Type: 
  Country: None (occurrence: None)
  Receive Date: 20100729
  Receipt Date: 20080201
  Transmission Date: 20110219
  Serious: Yes (Hospitalization)
  Sender: FDA-Public Use
  Company Number: US-PFIZER INC-2008010968

PATIENT
  Sex: Female

DRUGS (8)
  1. CELEBREX [Suspect]
     Indication: HEADACHE
     Route: 048
  2. CELEBREX [Suspect]
     Indication: ARTHRITIS
  3. ASPIRIN [Concomitant]
  4. ASCORBIC ACID [Concomitant]
  5. ZOLOFT [Concomitant]
  6. CLONAZEPAM [Concomitant]
  7. MULTI-VITAMINS [Concomitant]
  8. BENADRYL [Concomitant]

REACTIONS (1)
  - CEREBRAL HAEMORRHAGE [None]
